FAERS Safety Report 25930819 (Version 1)
Quarter: 2025Q4

REPORT INFORMATION
  Report Type: Spontaneous
  Country: EU (occurrence: EU)
  Receive Date: 20251016
  Receipt Date: 20251016
  Transmission Date: 20260118
  Serious: Yes (Death, Other)
  Sender: SANOFI AVENTIS
  Company Number: None

PATIENT
  Age: 21 Year
  Sex: Female
  Weight: 56 kg

DRUGS (18)
  1. PREDNISONE [Interacting]
     Active Substance: PREDNISONE
     Indication: Febrile infection-related epilepsy syndrome
     Dosage: 60 MG 1/J
     Route: 048
     Dates: start: 20250507, end: 20250525
  2. LOVENOX [Suspect]
     Active Substance: ENOXAPARIN SODIUM
     Indication: Vena cava thrombosis
     Dosage: 6000 UI*2/D, LOVENOX 6000 IU ANTI-XA /0.6 ML, SOLUTION FOR INJECTION (S.C.) IN PREFILLED SYRINGE
     Route: 058
     Dates: start: 20250428, end: 20250513
  3. LOVENOX [Suspect]
     Active Substance: ENOXAPARIN SODIUM
     Indication: Prophylaxis
     Dosage: 6000 IU/G/ 6000 UI*2/D, LOVENOX 6000 IU ANTI-XA /0.6 ML, SOLUTION FOR INJECTION (S.C.) IN PREFILLED
     Route: 058
     Dates: start: 20250516, end: 20250521
  4. LOVENOX [Suspect]
     Active Substance: ENOXAPARIN SODIUM
     Dosage: 6000 IU/G/ 6000 UI*2/D, LOVENOX 6000 IU ANTI-XA /0.6 ML, SOLUTION FOR INJECTION (S.C.) IN PREFILLED
     Route: 058
     Dates: start: 20250523, end: 20250523
  5. VALPROIC ACID [Suspect]
     Active Substance: VALPROIC ACID
     Dosage: UNK
     Dates: end: 20250508
  6. FLUCONAZOLE [Suspect]
     Active Substance: FLUCONAZOLE
     Indication: Candida infection
     Dosage: UNK
     Dates: start: 20250516
  7. FLUCONAZOLE [Suspect]
     Active Substance: FLUCONAZOLE
     Dosage: FLUCONAZOLE FOR 7 DAYS
  8. KETAMINE [Suspect]
     Active Substance: KETAMINE
     Dates: end: 20250508
  9. MIDAZOLAM [Suspect]
     Active Substance: MIDAZOLAM
     Indication: Status epilepticus
     Dosage: 6-7 OF 2025 RESUMPTION OF MIDAZOLAM
  10. METHYLPREDNISOLONE [Interacting]
     Active Substance: METHYLPREDNISOLONE
     Indication: Febrile infection-related epilepsy syndrome
     Dosage: INTRATRACHEAL INJECTIONS OF METHYLPREDNISOLONE 40 MG
     Route: 037
     Dates: start: 20250523, end: 20250523
  11. MEROPENEM [Suspect]
     Active Substance: MEROPENEM
     Indication: Antibiotic therapy
  12. PIPERACILLIN SODIUM\TAZOBACTAM SODIUM [Interacting]
     Active Substance: PIPERACILLIN SODIUM\TAZOBACTAM SODIUM
     Indication: Antibiotic therapy
     Dosage: 2G/0.25G/2 TIMES A DAY
     Route: 042
     Dates: start: 20250525, end: 20250525
  13. AMPHOTERICIN B [Suspect]
     Active Substance: AMPHOTERICIN B
     Indication: Candida infection
     Dosage: 3 INTRAVITREAL INJECTIONS OF AMPHOTERICIN B (16-MAY, 18-MAY, 23-MAY)
     Route: 031
     Dates: start: 20250516
  14. AMPHOTERICIN B [Suspect]
     Active Substance: AMPHOTERICIN B
     Dosage: 3 INTRAVITREAL INJECTIONS OF AMPHOTERICIN B (16-MAY, 18-MAY, 23-MAY)
     Route: 031
     Dates: start: 20250518
  15. AMPHOTERICIN B [Suspect]
     Active Substance: AMPHOTERICIN B
     Dosage: 3 INTRAVITREAL INJECTIONS OF AMPHOTERICIN B (16-MAY, 18-MAY, 23-MAY)
     Route: 031
     Dates: start: 20250523
  16. ARGIPRESSIN [Suspect]
     Active Substance: ARGIPRESSIN
  17. CASPOFUNGIN [Suspect]
     Active Substance: CASPOFUNGIN
     Indication: Candida infection
     Dates: end: 20250516
  18. INSULIN NOS [Concomitant]
     Active Substance: INSULIN NOS

REACTIONS (10)
  - Haemorrhage [Fatal]
  - Haemoperitoneum [Not Recovered/Not Resolved]
  - Hepatic haematoma [Not Recovered/Not Resolved]
  - Cholestasis [Unknown]
  - Thrombocytopenia [Recovered/Resolved]
  - Shock haemorrhagic [Fatal]
  - Lactic acidosis [Unknown]
  - Anaemia [Unknown]
  - Labelled drug-drug interaction issue [Not Recovered/Not Resolved]
  - Off label use [Unknown]

NARRATIVE: CASE EVENT DATE: 20250515
